FAERS Safety Report 4866507-8 (Version None)
Quarter: 2005Q4

REPORT INFORMATION
  Report Type: 
  Country: None (occurrence: None)
  Receive Date: 20051221
  Receipt Date: 20051208
  Transmission Date: 20060501
  Serious: Yes (Other)
  Sender: FDA-Public Use
  Company Number: 2005167247

PATIENT
  Age: 61 Year
  Sex: Male
  Weight: 93.441 kg

DRUGS (4)
  1. VIAGRA [Suspect]
     Indication: ERECTILE DYSFUNCTION
  2. DRUGS USED IN ERECTILE DYSFUNCTION (OTHER UROLOGICALS, INCL ANTISPASMO [Suspect]
     Indication: ERECTILE DYSFUNCTION
     Dosage: PARENTERAL
     Route: 051
  3. VALSARTAN [Concomitant]
  4. ASPIRIN [Concomitant]

REACTIONS (10)
  - ASTHENIA [None]
  - BURNING SENSATION [None]
  - DRUG INEFFECTIVE [None]
  - FAECES HARD [None]
  - PAIN [None]
  - PENIS DISORDER [None]
  - POLLAKIURIA [None]
  - PROSTATE CANCER [None]
  - RETROGRADE EJACULATION [None]
  - WRONG TECHNIQUE IN DRUG USAGE PROCESS [None]
